FAERS Safety Report 9217028 (Version 2)
Quarter: 2013Q2

REPORT INFORMATION
  Report Type: Spontaneous
  Country: US (occurrence: None)
  Receive Date: 20130403
  Receipt Date: 20130417
  Transmission Date: 20140414
  Serious: Yes (Other)
  Sender: FDA-Public Use
  Company Number: JPI-P-030765

PATIENT
  Age: 56 Year
  Sex: Female
  Weight: 81.65 kg

DRUGS (3)
  1. XYREM [Suspect]
     Indication: CATAPLEXY
     Route: 048
     Dates: start: 201112
  2. THYROID MEDICATION (UNKNOWN) [Concomitant]
  3. CHOLESTEROL MEDICATION (UNKNOWN) [Concomitant]

REACTIONS (1)
  - Breast cancer female [None]
